FAERS Safety Report 4610236-2 (Version None)
Quarter: 2005Q1

REPORT INFORMATION
  Report Type: 
  Country: None (occurrence: None)
  Receive Date: 20050314
  Receipt Date: 20050225
  Transmission Date: 20050727
  Serious: Yes (Death, Hospitalization)
  Sender: FDA-Public Use
  Company Number: 10420

PATIENT
  Age: 47 Year
  Sex: Male

DRUGS (4)
  1. AMIODARONE HCL [Suspect]
     Dosage: 200 MG
  2. SILDENAFIL CITRATE [Suspect]
     Indication: EISENMENGER'S SYNDROME
     Dosage: 25 MG TID
     Dates: start: 20040501, end: 20040101
  3. SILDENAFIL CITRATE [Suspect]
     Indication: PULMONARY HYPERTENSION
     Dosage: 25 MG TID
     Dates: start: 20040501, end: 20040101
  4. AMOXICILLIN AND CLAVULANATE POTASSIUM [Concomitant]

REACTIONS (8)
  - ACTIVATED PARTIAL THROMBOPLASTIN TIME SHORTENED [None]
  - ATRIAL FIBRILLATION [None]
  - HAEMOGLOBIN ABNORMAL [None]
  - INTERNATIONAL NORMALISED RATIO INCREASED [None]
  - INTUBATION COMPLICATION [None]
  - PO2 DECREASED [None]
  - PULMONARY HAEMORRHAGE [None]
  - RESPIRATORY FAILURE [None]
